FAERS Safety Report 4667270-6 (Version None)
Quarter: 2005Q2

REPORT INFORMATION
  Report Type: 
  Country: None (occurrence: None)
  Receive Date: 20050520
  Receipt Date: 20040907
  Transmission Date: 20051028
  Serious: Yes (Other)
  Sender: FDA-Public Use
  Company Number: PHEH2004US09599

PATIENT
  Age: 66 Year
  Sex: Male

DRUGS (15)
  1. THALIDOMIDE [Concomitant]
     Dates: start: 20020101
  2. TESTOSTERONE [Concomitant]
     Dates: start: 20030201
  3. CALCITRIOL [Concomitant]
  4. ESTINYL [Concomitant]
     Indication: PROSTATE CANCER
     Dates: start: 20021201
  5. PROSCAR [Concomitant]
     Indication: PROSTATE CANCER
     Dates: start: 20021201
  6. LEUKINE [Concomitant]
     Indication: PROSTATE CANCER
     Dosage: 200 UG, UNK
     Dates: start: 20021201
  7. BIAXIN [Concomitant]
     Dates: start: 20040601, end: 20040601
  8. ANDROGENS [Concomitant]
     Dates: start: 20040601
  9. COUMADIN [Concomitant]
     Dosage: 2 MG, UNK
     Dates: start: 20040601
  10. INTRON [Concomitant]
     Dates: start: 20040601
  11. ESTRAMUSTINE [Concomitant]
     Indication: PROSTATE CANCER
     Dates: start: 20040401
  12. ZOMETA [Suspect]
     Indication: OSTEOPENIA
     Dosage: 4 MG, QMO
     Dates: start: 20021201, end: 20040517
  13. LUPRON [Concomitant]
     Indication: PROSTATE CANCER
     Dates: start: 20021201
  14. CARBOPLATIN [Concomitant]
     Dates: start: 20040401
  15. TAXOTERE [Concomitant]

REACTIONS (6)
  - ENDODONTIC PROCEDURE [None]
  - GENERAL PHYSICAL HEALTH DETERIORATION [None]
  - IMPAIRED HEALING [None]
  - JAW DISORDER [None]
  - OSTEONECROSIS [None]
  - TOOTH EXTRACTION [None]
